FAERS Safety Report 4500773-3 (Version None)
Quarter: 2004Q4

REPORT INFORMATION
  Report Type: 
  Country: None (occurrence: None)
  Receive Date: 20041112
  Receipt Date: 20041112
  Transmission Date: 20050328
  Serious: Yes (Disabling)
  Sender: FDA-Public Use
  Company Number: None

PATIENT
  Sex: Female
  Weight: 68.0396 kg

DRUGS (6)
  1. ZICAM ZINCUM GLUCONICUM 2X MATRIX [Suspect]
     Indication: NASOPHARYNGITIS
     Dosage: ONE SWAB Q 4 H NASAL
     Route: 045
     Dates: start: 20040401, end: 20040405
  2. ZICAM ZINCUM GLUCONICUM 2X MATRIX [Suspect]
     Indication: NASOPHARYNGITIS
     Dosage: ONE SWAB Q 4 H NASAL
     Route: 045
     Dates: start: 20040405, end: 20040405
  3. TRAZODONE HCL [Concomitant]
  4. ZANAFLEX [Concomitant]
  5. EXTRA STRENGTH TYLENOL [Concomitant]
  6. ALEVE [Concomitant]

REACTIONS (3)
  - NASAL DISCOMFORT [None]
  - NASAL DRYNESS [None]
  - PAROSMIA [None]
